FAERS Safety Report 11112585 (Version 3)
Quarter: 2015Q2

REPORT INFORMATION
  Report Type: Spontaneous
  Country: CH (occurrence: CH)
  Receive Date: 20150514
  Receipt Date: 20150626
  Transmission Date: 20150821
  Serious: Yes (Other)
  Sender: FDA-Public Use
  Company Number: CH-PFIZER INC-2015156085

PATIENT
  Age: 46 Year
  Sex: Female

DRUGS (9)
  1. DALACIN [Suspect]
     Active Substance: CLINDAMYCIN\CLINDAMYCIN PHOSPHATE
     Indication: CELLULITIS
  2. DALACIN [Suspect]
     Active Substance: CLINDAMYCIN\CLINDAMYCIN PHOSPHATE
     Indication: CELLULITIS
  3. DALACIN [Suspect]
     Active Substance: CLINDAMYCIN\CLINDAMYCIN PHOSPHATE
     Indication: SEPSIS
     Dosage: 600 MG, 2X/DAY
     Route: 048
     Dates: start: 20130508, end: 20130509
  4. CO-AMOXI MEPHA [Concomitant]
     Indication: CELLULITIS
     Dosage: 625 MG, 3X/DAY
     Route: 048
     Dates: start: 20130509, end: 20130513
  5. CO-AMOXI MEPHA [Concomitant]
     Indication: SEPSIS
     Dosage: 600 MG, 3X/DAY
     Route: 042
     Dates: start: 20130506, end: 20130508
  6. CO-AMOXI MEPHA [Concomitant]
     Indication: CELLULITIS
  7. CO-AMOXI MEPHA [Concomitant]
     Indication: SEPSIS
     Dosage: 625 MG, 3X/DAY
     Route: 048
     Dates: start: 20130504, end: 20130505
  8. DAFALGAN [Concomitant]
     Active Substance: ACETAMINOPHEN
     Dosage: 1 G, UNK
     Route: 048
     Dates: start: 20130506, end: 20130509
  9. DALACIN [Suspect]
     Active Substance: CLINDAMYCIN\CLINDAMYCIN PHOSPHATE
     Indication: SEPSIS
     Dosage: 600 MG, 3X/DAY
     Route: 042
     Dates: start: 20130506, end: 20130508

REACTIONS (34)
  - Coordination abnormal [Recovered/Resolved]
  - Nausea [Recovered/Resolved]
  - Underweight [Recovered/Resolved]
  - Vomiting [Recovered/Resolved]
  - Oropharyngeal plaque [Recovered/Resolved]
  - Cardiovascular disorder [Recovered/Resolved]
  - Abdominal pain [Recovered/Resolved]
  - Immune system disorder [Recovered/Resolved]
  - Cold sweat [Recovered/Resolved]
  - Nervous system disorder [Recovered/Resolved]
  - Oral candidiasis [Recovered/Resolved]
  - Food intolerance [Recovered/Resolved]
  - Seasonal allergy [Not Recovered/Not Resolved]
  - Diet refusal [Recovered/Resolved]
  - Dizziness [Recovered/Resolved]
  - Palpitations [Recovered/Resolved]
  - Asthenia [Recovered/Resolved]
  - Rash [Recovered/Resolved]
  - Pyrexia [Recovered/Resolved]
  - Influenza like illness [Recovered/Resolved]
  - Abdominal distension [Recovered/Resolved]
  - Dysbacteriosis [Recovered/Resolved]
  - Hepatic pain [Recovered/Resolved]
  - Night sweats [Recovered/Resolved]
  - Diarrhoea [Recovered/Resolved]
  - Flatulence [Recovered/Resolved]
  - Tremor [Recovered/Resolved]
  - Yellow skin [Recovered/Resolved]
  - Anxiety [Recovered/Resolved]
  - Hypersomnia [Recovered/Resolved]
  - Feeling hot [Recovered/Resolved]
  - Respiratory disorder [Recovered/Resolved]
  - Eructation [Recovered/Resolved]
  - Mouth haemorrhage [Recovered/Resolved]

NARRATIVE: CASE EVENT DATE: 2013
